FAERS Safety Report 9390290 (Version 2)
Quarter: 2013Q3

REPORT INFORMATION
  Report Type: Spontaneous
  Country: SK (occurrence: SK)
  Receive Date: 20130709
  Receipt Date: 20130819
  Transmission Date: 20140515
  Serious: Yes (Death, Hospitalization, Other)
  Sender: FDA-Public Use
  Company Number: SK-AMGEN-SVKSP2013047513

PATIENT
  Age: 66 Year
  Sex: Female

DRUGS (1)
  1. ENBREL [Suspect]
     Indication: PSORIASIS
     Dosage: UNK
     Route: 065
     Dates: start: 20121105

REACTIONS (6)
  - Pulmonary embolism [Fatal]
  - Dyspepsia [Unknown]
  - Hypertension [Unknown]
  - Headache [Unknown]
  - Vertigo [Unknown]
  - Brain neoplasm [Unknown]
